FAERS Safety Report 19504816 (Version 2)
Quarter: 2022Q2

REPORT INFORMATION
  Report Type: Other
  Country: FR (occurrence: FR)
  Receive Date: 20210708
  Receipt Date: 20220420
  Transmission Date: 20220721
  Serious: Yes (Other)
  Sender: FDA-Public Use
  Company Number: FR-CELLTRION INC.-2021FR008961

PATIENT

DRUGS (2)
  1. RITUXIMAB [Suspect]
     Active Substance: RITUXIMAB
     Indication: Mantle cell lymphoma
  2. IMBRUVICA [Suspect]
     Active Substance: IBRUTINIB
     Indication: Mantle cell lymphoma
     Dosage: 2240 MG, EVERY DAY
     Route: 048

REACTIONS (5)
  - Accidental poisoning [Unknown]
  - Lipase increased [Unknown]
  - Renal failure [Unknown]
  - Overdose [Unknown]
  - Off label use [Unknown]
